FAERS Safety Report 17125429 (Version 1)
Quarter: 2019Q4

REPORT INFORMATION
  Report Type: Spontaneous
  Country: SE (occurrence: SE)
  Receive Date: 20191207
  Receipt Date: 20191207
  Transmission Date: 20200122
  Serious: Yes (Other)
  Sender: FDA-Public Use
  Company Number: SE-ACCORD-163696

PATIENT
  Sex: Male
  Weight: 74 kg

DRUGS (5)
  1. LERGIGAN (PROMETHAZINE) [Suspect]
     Active Substance: PROMETHAZINE HYDROCHLORIDE
     Dosage: LERGIGAN 325 MG 18.40-21.10 125 MG
     Route: 048
     Dates: start: 20181116, end: 20181116
  2. DESLORATADINE. [Suspect]
     Active Substance: DESLORATADINE
     Route: 048
     Dates: start: 20181116, end: 20181116
  3. ESOMEPRAZOLE/ESOMEPRAZOLE MAGNESIUM/ESOMEPRAZOLE SODIUM [Suspect]
     Active Substance: ESOMEPRAZOLE
     Route: 048
     Dates: start: 20181116, end: 20181116
  4. ATORBIR [Suspect]
     Active Substance: ATORVASTATIN
     Dosage: ATORBIR 80
     Route: 048
     Dates: start: 20181116, end: 20181116
  5. CISORDINOL [Suspect]
     Active Substance: ZUCLOPENTHIXOL
     Route: 048
     Dates: start: 20181116, end: 20181116

REACTIONS (2)
  - Intentional self-injury [Unknown]
  - Intentional overdose [Unknown]

NARRATIVE: CASE EVENT DATE: 20181116
